FAERS Safety Report 9802957 (Version 1)
Quarter: 2014Q1

REPORT INFORMATION
  Report Type: Spontaneous
  Country: US (occurrence: None)
  Receive Date: 20140106
  Receipt Date: 20140106
  Transmission Date: 20141002
  Serious: Yes (Other)
  Sender: FDA-Public Use
  Company Number: None

PATIENT
  Age: 47 Year
  Sex: Male
  Weight: 90.72 kg

DRUGS (1)
  1. BELLA VI INSANE AMP^D [Suspect]
     Indication: WEIGHT CONTROL
     Dosage: 2 PILLS PER DAY
     Dates: start: 20130702, end: 20130704

REACTIONS (1)
  - Dysuria [None]
